FAERS Safety Report 9347873 (Version 1)
Quarter: 2013Q2

REPORT INFORMATION
  Report Type: Spontaneous
  Country: US (occurrence: None)
  Receive Date: 20130612
  Receipt Date: 20130612
  Transmission Date: 20140414
  Serious: Yes (Other)
  Sender: FDA-Public Use
  Company Number: None

PATIENT
  Age: 62 Year
  Sex: Male

DRUGS (6)
  1. INCIVEK 375MG VERTEX [Suspect]
     Indication: HEPATITIS C VIRUS TEST POSITIVE
     Route: 048
     Dates: start: 20130321
  2. PEGASYS [Concomitant]
  3. IBUPROFEN [Concomitant]
  4. LORAZEPAM [Concomitant]
  5. CLARINEX [Concomitant]
  6. RIBASHERE [Concomitant]

REACTIONS (4)
  - Rash [None]
  - Pruritus [None]
  - Blister [None]
  - Feeling hot [None]
